FAERS Safety Report 8026525-8 (Version None)
Quarter: 2012Q1

REPORT INFORMATION
  Report Type: 
  Country: None (occurrence: None)
  Receive Date: 20120106
  Receipt Date: 20120102
  Transmission Date: 20120608
  Serious: Yes (Death, Hospitalization, Other)
  Sender: FDA-Public Use
  Company Number: FR-BRISTOL-MYERS SQUIBB COMPANY-16326019

PATIENT
  Age: 57 Year
  Sex: Female

DRUGS (16)
  1. FLUCONAZOLE [Concomitant]
     Dates: start: 20111128, end: 20111204
  2. ETOPOSIDE [Suspect]
     Indication: LYMPHOMA
     Dosage: 202 MG/M2
     Route: 042
     Dates: start: 20111117, end: 20111120
  3. NEXIUM [Concomitant]
     Dates: start: 20111001
  4. AMIKACIN [Concomitant]
     Dates: start: 20111118
  5. OXACILLIN SODIUM [Concomitant]
  6. GENTAMICIN [Concomitant]
     Dates: start: 20111123, end: 20111125
  7. ZOVIRAX [Concomitant]
     Dates: start: 20111127
  8. MABTHERA [Suspect]
     Indication: LYMPHOMA
     Dosage: 500 MG/M2,14JUL2011:1SCOURSE:14JUL,2ND COURSE:09AUG,3RD COURSE:08SEP,4TH COURSE:06OCT.15NOV2011
     Route: 042
     Dates: start: 20110714
  9. ALKERAN [Suspect]
     Indication: LYMPHOMA
     Dosage: 139 MG/M2
     Route: 042
     Dates: start: 20111121
  10. CYTARABINE [Suspect]
     Indication: LYMPHOMA
     Dosage: 398 MG/M2,1S COURS:12JUL2011,2ND COURS:11AUG2011,3RD COURSE:10SEP2011,4TH COURS:06OCT2011,17NOV2011
     Route: 042
     Dates: start: 20110712, end: 20111120
  11. VANCOMYCIN [Concomitant]
     Dates: start: 20111118
  12. BICNU [Suspect]
     Indication: LYMPHOMA
     Dosage: 297 MG/M2
     Route: 042
     Dates: start: 20111116
  13. ROCEPHIN [Concomitant]
     Dates: start: 20111123, end: 20111130
  14. BACTRIM [Concomitant]
     Dates: start: 20111127
  15. TIENAM [Concomitant]
     Dates: start: 20111130, end: 20111204
  16. CIPROFLOXACIN [Concomitant]
     Dates: start: 20111130, end: 20111204

REACTIONS (7)
  - ASPERGILLOSIS [None]
  - CONFUSIONAL STATE [None]
  - CARDIAC FAILURE [None]
  - ACUTE PULMONARY OEDEMA [None]
  - TRICUSPID VALVE INCOMPETENCE [None]
  - EJECTION FRACTION DECREASED [None]
  - HALLUCINATION, VISUAL [None]
